FAERS Safety Report 9146851 (Version 1)
Quarter: 2013Q1

REPORT INFORMATION
  Report Type: Spontaneous
  Country: US (occurrence: US)
  Receive Date: 20130307
  Receipt Date: 20130307
  Transmission Date: 20140127
  Serious: No
  Sender: FDA-Public Use
  Company Number: US-009507513-1303USA002061

PATIENT
  Sex: Female

DRUGS (3)
  1. VICTRELIS [Suspect]
     Indication: HEPATITIS C
     Dosage: 200 MG CAPSULE, 4 CAPSULES 3 TIMES DAILY
     Route: 048
  2. REBETOL [Suspect]
     Route: 048
  3. PEGINTRON [Suspect]

REACTIONS (1)
  - Drug screen positive [Unknown]
